FAERS Safety Report 7797525-8 (Version None)
Quarter: 2011Q4

REPORT INFORMATION
  Report Type: 
  Country: None (occurrence: None)
  Receive Date: 20111004
  Receipt Date: 20111004
  Transmission Date: 20120403
  Serious: Yes (Hospitalization)
  Sender: FDA-Public Use
  Company Number: None

PATIENT
  Sex: Female
  Weight: 86 kg

DRUGS (16)
  1. FLUCONAZOLE [Concomitant]
  2. PEPCID [Concomitant]
  3. LIDOCAINE [Concomitant]
  4. AZACITIDINE [Suspect]
     Indication: ACUTE MYELOID LEUKAEMIA
     Dosage: 146.0 MG QD 042
     Dates: start: 20110916, end: 20110922
  5. PRILOSEC [Concomitant]
  6. ALLOPURINOL [Concomitant]
  7. ATIVAN [Concomitant]
  8. AZACITIDINE [Concomitant]
  9. VITAMIN D [Concomitant]
  10. ACYCLOVIR [Concomitant]
  11. MORPHINE [Concomitant]
  12. IMODIUM [Concomitant]
  13. ZOFRAN [Concomitant]
  14. LEVAQUIN [Concomitant]
  15. MIDOSTAURIN 25.0 MG NOVARITIS [Suspect]
     Indication: ACUTE MYELOID LEUKAEMIA
     Dosage: 75.0 MG BID 047
     Route: 048
     Dates: start: 20110923, end: 20111006
  16. TYLENOL-500 [Concomitant]

REACTIONS (2)
  - HAEMOGLOBIN DECREASED [None]
  - DIARRHOEA [None]
